FAERS Safety Report 8184370-7 (Version None)
Quarter: 2012Q1

REPORT INFORMATION
  Report Type: 
  Country: None (occurrence: None)
  Receive Date: 20120305
  Receipt Date: 20120221
  Transmission Date: 20120608
  Serious: Yes (Life-Threatening, Hospitalization)
  Sender: FDA-Public Use
  Company Number: US-JNJFOC-20120211912

PATIENT
  Age: 43 Year
  Sex: Female

DRUGS (1)
  1. IMODIUM [Suspect]
     Indication: PRODUCT USED FOR UNKNOWN INDICATION
     Dosage: 140 TABLETS, DAILY
     Route: 048

REACTIONS (3)
  - INTENTIONAL OVERDOSE [None]
  - VENTRICULAR FIBRILLATION [None]
  - INTENTIONAL DRUG MISUSE [None]
